FAERS Safety Report 4747124-7 (Version None)
Quarter: 2005Q3

REPORT INFORMATION
  Report Type: 
  Country: None (occurrence: None)
  Receive Date: 20050815
  Receipt Date: 20050801
  Transmission Date: 20060218
  Serious: Yes (Death, Life-Threatening, Hospitalization, Other)
  Sender: FDA-Public Use
  Company Number: US_0504115902

PATIENT
  Age: 53 Year
  Sex: Female

DRUGS (3)
  1. ZYPREXA [Suspect]
     Indication: IRRITABILITY
     Dosage: 15 MG
     Dates: start: 20021009, end: 20030617
  2. ZYPREXA [Suspect]
     Indication: IRRITABILITY
     Dosage: 5 MG
     Dates: start: 20020727
  3. INSULIN LISPRO [Concomitant]

REACTIONS (29)
  - ABDOMINAL DISTENSION [None]
  - ANAEMIA [None]
  - ATELECTASIS [None]
  - CARDIO-RESPIRATORY ARREST [None]
  - CHRONIC OBSTRUCTIVE PULMONARY DISEASE [None]
  - DEPRESSED LEVEL OF CONSCIOUSNESS [None]
  - DIABETIC COMA [None]
  - DIABETIC KETOACIDOSIS [None]
  - DRUG EFFECT DECREASED [None]
  - GASTRITIS [None]
  - GASTROINTESTINAL HAEMORRHAGE [None]
  - GENERAL PHYSICAL HEALTH DETERIORATION [None]
  - HYPOXIA [None]
  - ILEUS [None]
  - KUSSMAUL RESPIRATION [None]
  - LUNG INFILTRATION [None]
  - MUCOSAL INFLAMMATION [None]
  - MULTI-ORGAN FAILURE [None]
  - PANCREATITIS [None]
  - PNEUMONIA ASPIRATION [None]
  - PULMONARY OEDEMA [None]
  - RED BLOOD CELL MORPHOLOGY ABNORMAL [None]
  - RESPIRATORY FAILURE [None]
  - SEPSIS [None]
  - SEPTIC SHOCK [None]
  - SINUS TACHYCARDIA [None]
  - STRESS [None]
  - VOMITING [None]
  - WHITE BLOOD CELL COUNT INCREASED [None]
